FAERS Safety Report 13680852 (Version 2)
Quarter: 2017Q3

REPORT INFORMATION
  Report Type: Spontaneous
  Country: RU (occurrence: RU)
  Receive Date: 20170623
  Receipt Date: 20170726
  Transmission Date: 20171127
  Serious: Yes (Other)
  Sender: FDA-Public Use
  Company Number: RU-ROCHE-1954124

PATIENT
  Age: 37 Year
  Sex: Male

DRUGS (2)
  1. RANIBIZUMAB. [Suspect]
     Active Substance: RANIBIZUMAB
     Indication: RETINAL VEIN THROMBOSIS
     Route: 031
  2. RANIBIZUMAB. [Suspect]
     Active Substance: RANIBIZUMAB
     Dosage: UNK
     Route: 031

REACTIONS (3)
  - Visual impairment [Recovered/Resolved]
  - Product use in unapproved indication [Unknown]
  - Retinal exudates [Recovered/Resolved]
